FAERS Safety Report 7766328-2 (Version None)
Quarter: 2011Q3

REPORT INFORMATION
  Report Type: 
  Country: None (occurrence: None)
  Receive Date: 20110922
  Receipt Date: 20110912
  Transmission Date: 20111222
  Serious: No
  Sender: FDA-Public Use
  Company Number: US-BIOGENIDEC-2011BI004159

PATIENT
  Age: 62 Year
  Sex: Female

DRUGS (4)
  1. TYSABRI [Suspect]
     Route: 042
  2. LORTAB [Concomitant]
     Indication: PAIN
     Dates: start: 20040101
  3. TYSABRI [Suspect]
     Route: 042
     Dates: start: 20071121, end: 20080417
  4. TYSABRI [Suspect]
     Indication: MULTIPLE SCLEROSIS
     Route: 042
     Dates: start: 20081120, end: 20100825

REACTIONS (1)
  - PAIN IN EXTREMITY [None]
